FAERS Safety Report 18512961 (Version 1)
Quarter: 2020Q4

REPORT INFORMATION
  Report Type: Spontaneous
  Country: US (occurrence: US)
  Receive Date: 20201117
  Receipt Date: 20201117
  Transmission Date: 20210114
  Serious: Yes (Other)
  Sender: FDA-Public Use
  Company Number: US-ASTRAZENECA-2020SF51479

PATIENT
  Sex: Female

DRUGS (1)
  1. BYDUREON [Suspect]
     Active Substance: EXENATIDE
     Route: 065

REACTIONS (6)
  - Intestinal obstruction [Unknown]
  - Appendicitis [Unknown]
  - Illness [Unknown]
  - Abdominal distension [Not Recovered/Not Resolved]
  - Pain [Unknown]
  - Gallbladder obstruction [Unknown]
